FAERS Safety Report 9691900 (Version 2)
Quarter: 2013Q4

REPORT INFORMATION
  Report Type: Spontaneous
  Country: US (occurrence: US)
  Receive Date: 20131117
  Receipt Date: 20131211
  Transmission Date: 20140711
  Serious: Yes (Hospitalization, Other)
  Sender: FDA-Public Use
  Company Number: US-ROCHE-1304276

PATIENT
  Age: 53 Year
  Sex: Male

DRUGS (4)
  1. ALTEPLASE [Suspect]
     Indication: ISCHAEMIC STROKE
     Route: 042
  2. PREDNISONE [Concomitant]
     Indication: ALLERGIC GRANULOMATOUS ANGIITIS
     Route: 065
  3. METHOTREXATE [Concomitant]
     Indication: ALLERGIC GRANULOMATOUS ANGIITIS
     Route: 065
  4. SIMVASTATIN [Concomitant]
     Route: 065

REACTIONS (5)
  - Haemorrhage intracranial [Unknown]
  - Intraventricular haemorrhage [Unknown]
  - Basal ganglia haemorrhage [Unknown]
  - Brain midline shift [Unknown]
  - Vomiting [Unknown]
